FAERS Safety Report 4822881-X (Version None)
Quarter: 2005Q4

REPORT INFORMATION
  Report Type: 
  Country: None (occurrence: None)
  Receive Date: 20051104
  Receipt Date: 20051028
  Transmission Date: 20060501
  Serious: Yes (Hospitalization, Other)
  Sender: FDA-Public Use
  Company Number: KII-2005-0019382

PATIENT
  Age: 48 Year
  Sex: Male

DRUGS (7)
  1. MORPHINE SULFATE [Suspect]
     Indication: INTENTIONAL DRUG MISUSE
     Dosage: ORAL
     Route: 048
  2. ACETAMINOPHEN AND HYDROCODONE BITARTRATE [Suspect]
     Indication: INTENTIONAL DRUG MISUSE
     Dosage: ORAL
     Route: 048
  3. ANTIHISTAMINES FOR SYSTEMIC USE [Suspect]
     Indication: INTENTIONAL DRUG MISUSE
     Dosage: ORAL
     Route: 048
  4. GASTROINTESTINAL PREPARATION [Suspect]
     Indication: INTENTIONAL DRUG MISUSE
     Dosage: ORAL
     Route: 048
  5. ANTEPILEPTICS [Suspect]
     Indication: INTENTIONAL DRUG MISUSE
     Dosage: ORAL
     Route: 048
  6. BENZODIAZEPINE DERIVATIVES [Suspect]
     Indication: INTENTIONAL DRUG MISUSE
     Dosage: ORAL
     Route: 048
  7. ASPIRIN [Suspect]
     Indication: DRUG USE FOR UNKNOWN INDICATION

REACTIONS (9)
  - ALANINE AMINOTRANSFERASE DECREASED [None]
  - ASPARTATE AMINOTRANSFERASE INCREASED [None]
  - BLOOD ALKALINE PHOSPHATASE INCREASED [None]
  - BLOOD GLUCOSE INCREASED [None]
  - HYPERKALAEMIA [None]
  - LOSS OF CONSCIOUSNESS [None]
  - POLYSUBSTANCE ABUSE [None]
  - PULMONARY OEDEMA [None]
  - SOMNOLENCE [None]
